FAERS Safety Report 5412421-9 (Version None)
Quarter: 2007Q3

REPORT INFORMATION
  Report Type: 
  Country: None (occurrence: None)
  Receive Date: 20070813
  Receipt Date: 20070810
  Transmission Date: 20080115
  Serious: Yes (Life-Threatening, Other)
  Sender: FDA-Public Use
  Company Number: PHBS2007BR13340

PATIENT
  Age: 34 Year
  Sex: Female

DRUGS (1)
  1. CODATEN [Suspect]
     Indication: MUSCULOSKELETAL PAIN
     Dosage: 0.5 DF, Q4H
     Route: 048
     Dates: start: 20070808, end: 20070809

REACTIONS (7)
  - ABDOMINAL DISTENSION [None]
  - ABDOMINAL PAIN UPPER [None]
  - EYE SWELLING [None]
  - FEELING ABNORMAL [None]
  - HEADACHE [None]
  - SWELLING FACE [None]
  - VOMITING [None]
